FAERS Safety Report 8977025 (Version 1)
Quarter: 2012Q4

REPORT INFORMATION
  Report Type: 
  Country: IT (occurrence: IT)
  Receive Date: 20121220
  Receipt Date: 20121220
  Transmission Date: 20130627
  Serious: Yes (Hospitalization)
  Sender: FDA-Public Use
  Company Number: IT-ASTRAZENECA-2012SE93223

PATIENT
  Age: 31615 Day
  Sex: Female

DRUGS (5)
  1. MERREM [Suspect]
     Indication: UROSEPSIS
     Route: 042
     Dates: start: 20121120, end: 20121129
  2. WARFARIN [Concomitant]
     Indication: ATRIAL FIBRILLATION
  3. TRAMADOL [Concomitant]
     Indication: SPINAL FRACTURE
  4. QUETIAPINE [Concomitant]
     Indication: COGNITIVE DISORDER
     Route: 048
  5. INSULIN LISPRO [Concomitant]
     Indication: TYPE 2 DIABETES MELLITUS

REACTIONS (2)
  - Localised oedema [Recovering/Resolving]
  - Rash morbilliform [Recovering/Resolving]
